FAERS Safety Report 13331450 (Version 1)
Quarter: 2017Q1

REPORT INFORMATION
  Report Type: Spontaneous
  Country: US (occurrence: US)
  Receive Date: 20170314
  Receipt Date: 20170314
  Transmission Date: 20170428
  Serious: No
  Sender: FDA-Public Use
  Company Number: US-JNJFOC-20170122986

PATIENT
  Age: 4 Year
  Sex: Female
  Weight: 15.88 kg

DRUGS (3)
  1. CHILDRENS MOTRIN [Suspect]
     Active Substance: IBUPROFEN
     Indication: PYREXIA
     Route: 048
     Dates: start: 20170120, end: 20170123
  2. CHILDRENS MOTRIN [Suspect]
     Active Substance: IBUPROFEN
     Route: 048
  3. ENZYME [Concomitant]
     Indication: COELIAC DISEASE
     Route: 065

REACTIONS (4)
  - Diarrhoea [Recovered/Resolved]
  - Product formulation issue [Unknown]
  - Abdominal pain upper [Recovered/Resolved]
  - Incorrect dose administered [Unknown]

NARRATIVE: CASE EVENT DATE: 20170120
